FAERS Safety Report 7300706-0 (Version None)
Quarter: 2011Q1

REPORT INFORMATION
  Report Type: 
  Country: None (occurrence: None)
  Receive Date: 20110103
  Receipt Date: 20100415
  Transmission Date: 20110831
  Serious: Yes (Other)
  Sender: FDA-Public Use
  Company Number: US-004336

PATIENT
  Age: 59 Year
  Sex: Female

DRUGS (4)
  1. PROHANCE [Suspect]
     Indication: NUCLEAR MAGNETIC RESONANCE IMAGING
     Dosage: 19ML ONCE INTRAVENOUS
     Route: 042
     Dates: start: 20100414, end: 20100414
  2. PROHANCE [Suspect]
     Indication: SURGERY
     Dosage: 19ML ONCE INTRAVENOUS
     Route: 042
     Dates: start: 20100414, end: 20100414
  3. CALTERIDOL (CALCIUM) [Concomitant]
  4. TORADOL [Concomitant]

REACTIONS (3)
  - MENTAL IMPAIRMENT [None]
  - AMNESIA [None]
  - ANAPHYLACTIC REACTION [None]
